FAERS Safety Report 24638014 (Version 1)
Quarter: 2024Q4

REPORT INFORMATION
  Report Type: Spontaneous
  Country: US (occurrence: US)
  Receive Date: 20241119
  Receipt Date: 20241119
  Transmission Date: 20250115
  Serious: Yes (Hospitalization, Other)
  Sender: PFIZER
  Company Number: US-PFIZER INC-PV202400149375

PATIENT
  Age: 81 Year
  Sex: Female
  Weight: 58.5 kg

DRUGS (4)
  1. VYNDAMAX [Suspect]
     Active Substance: TAFAMIDIS
     Indication: Cardiac failure
     Dosage: 61 MG, 1X/DAY
     Route: 048
     Dates: start: 20240305
  2. VYNDAMAX [Suspect]
     Active Substance: TAFAMIDIS
     Indication: Cardiac amyloidosis
  3. METHOTREXATE [Concomitant]
     Active Substance: METHOTREXATE
     Dosage: 20 MG, WEEKLY (EVERY FRIDAY, 10MG IN THE AM AND 10MG IN THE EVENING)
     Route: 048
     Dates: start: 20230117, end: 20241107
  4. NEURONTIN [Concomitant]
     Active Substance: GABAPENTIN
     Dosage: 200 MG, 3X/DAY (MORNING, NOON AND BEDTIME)
     Route: 048

REACTIONS (3)
  - Rectal haemorrhage [Unknown]
  - Haemoglobin decreased [Recovering/Resolving]
  - Tachycardia [Recovering/Resolving]

NARRATIVE: CASE EVENT DATE: 20240617
